FAERS Safety Report 10048147 (Version 2)
Quarter: 2014Q2

REPORT INFORMATION
  Report Type: Spontaneous
  Country: US (occurrence: US)
  Receive Date: 20140331
  Receipt Date: 20140527
  Transmission Date: 20141212
  Serious: No
  Sender: FDA-Public Use
  Company Number: US-PFIZER INC-2014086081

PATIENT
  Age: 72 Year
  Sex: Female
  Weight: 61.22 kg

DRUGS (4)
  1. TOVIAZ [Suspect]
     Indication: HYPERTONIC BLADDER
     Dosage: 4 MG, DAILY
     Dates: start: 201402, end: 2014
  2. TOVIAZ [Suspect]
     Dosage: 4 MG, DAILY
     Dates: start: 201403, end: 20140323
  3. OXYCODONE HYDROCHLORIDE [Suspect]
     Indication: BACK PAIN
     Dosage: BETWEEN 20MG TO 30MG DAILY, AS NEEDED
  4. OXYCODONE HYDROCHLORIDE [Suspect]
     Indication: NECK PAIN

REACTIONS (5)
  - Abdominal pain upper [Not Recovered/Not Resolved]
  - Constipation [Not Recovered/Not Resolved]
  - Dizziness [Not Recovered/Not Resolved]
  - Dry mouth [Not Recovered/Not Resolved]
  - Malaise [Not Recovered/Not Resolved]
